FAERS Safety Report 9729424 (Version 2)
Quarter: 2013Q4

REPORT INFORMATION
  Report Type: Spontaneous
  Country: US (occurrence: US)
  Receive Date: 20131204
  Receipt Date: 20131204
  Transmission Date: 20140711
  Serious: Yes (Hospitalization)
  Sender: FDA-Public Use
  Company Number: US-GILEAD-2009-0021146

PATIENT
  Age: 53 Year
  Sex: Female
  Weight: 83.01 kg

DRUGS (18)
  1. LETAIRIS [Suspect]
     Indication: PULMONARY ARTERIAL HYPERTENSION
     Route: 048
     Dates: start: 20070913
  2. VIAGRA [Concomitant]
  3. COUMADIN [Concomitant]
  4. DEMADEX [Concomitant]
  5. SPIRONOLACTONE [Concomitant]
  6. ADVAIR [Concomitant]
  7. XOPENEX [Concomitant]
  8. FLONASE [Concomitant]
  9. LIPITOR [Concomitant]
  10. BYETTA [Concomitant]
  11. LANTUS [Concomitant]
  12. NOVOLOG [Concomitant]
  13. POTASSIUM [Concomitant]
  14. MAGNESIUM [Concomitant]
  15. NEXIUM [Concomitant]
  16. RESTASIS [Concomitant]
  17. ZYRTEC [Concomitant]
  18. DICYCLOMINE [Concomitant]

REACTIONS (2)
  - Fluid overload [Not Recovered/Not Resolved]
  - Dyspnoea [Recovered/Resolved]
